FAERS Safety Report 5237348-7 (Version None)
Quarter: 2007Q1

REPORT INFORMATION
  Report Type: 
  Country: None (occurrence: None)
  Receive Date: 20070213
  Receipt Date: 20070201
  Transmission Date: 20070707
  Serious: Yes (Hospitalization)
  Sender: FDA-Public Use
  Company Number: JP-NOVOPROD-243326

PATIENT
  Age: 68 Year
  Sex: Male
  Weight: 65 kg

DRUGS (4)
  1. NOVORAPID CHU FLEXPEN [Suspect]
     Dosage: 30 (14+10+6) IU, QD
     Route: 058
     Dates: start: 20050318, end: 20050331
  2. NOVORAPID 30 MIX CHU FLEXPEN [Suspect]
     Indication: DIABETES MELLITUS
     Dosage: 22-38 IU, QD
     Route: 058
     Dates: start: 20030423, end: 20050317
  3. NOVOLIN N [Suspect]
     Indication: DIABETES MELLITUS
     Dosage: 4 IU, QD
     Route: 058
     Dates: start: 20050318, end: 20050318
  4. NOVOLIN R [Suspect]
     Indication: DIABETES MELLITUS INSULIN-DEPENDENT
     Dosage: 28 U, QD
     Route: 058
     Dates: start: 20060401

REACTIONS (1)
  - ANTI-INSULIN ANTIBODY POSITIVE [None]
